FAERS Safety Report 16675877 (Version 2)
Quarter: 2019Q4

REPORT INFORMATION
  Report Type: Spontaneous
  Country: US (occurrence: US)
  Receive Date: 20190807
  Receipt Date: 20191011
  Transmission Date: 20200122
  Serious: No
  Sender: FDA-Public Use
  Company Number: US-BIOGEN-2019BI00765556

PATIENT
  Sex: Female

DRUGS (2)
  1. TECFIDERA [Suspect]
     Active Substance: DIMETHYL FUMARATE
     Indication: MULTIPLE SCLEROSIS
     Route: 048
     Dates: start: 20190715
  2. TECFIDERA [Suspect]
     Active Substance: DIMETHYL FUMARATE
     Route: 065
     Dates: start: 20130410, end: 20181231

REACTIONS (6)
  - Flushing [Unknown]
  - White blood cell count decreased [Not Recovered/Not Resolved]
  - Product dose omission [Unknown]
  - Migraine [Unknown]
  - Pruritus [Not Recovered/Not Resolved]
  - Confusional state [Unknown]
